FAERS Safety Report 13685134 (Version 1)
Quarter: 2017Q2

REPORT INFORMATION
  Report Type: Spontaneous
  Country: GB (occurrence: GB)
  Receive Date: 20170623
  Receipt Date: 20170623
  Transmission Date: 20170830
  Serious: Yes (Other)
  Sender: FDA-Public Use
  Company Number: GB-MYLANLABS-2017M1036956

PATIENT

DRUGS (4)
  1. CABERGOLINE. [Suspect]
     Active Substance: CABERGOLINE
     Dosage: 0.75 MG/WEEK LATER ICREASED TO UNSPECIFIED DOSE
     Route: 065
  2. SUSTANON                           /00418401/ [Concomitant]
     Indication: PRODUCT USED FOR UNKNOWN INDICATION
     Dosage: 50-150 MG MONTHLY
     Route: 030
  3. CABERGOLINE. [Suspect]
     Active Substance: CABERGOLINE
     Indication: PROLACTIN-PRODUCING PITUITARY TUMOUR
     Dosage: 0.5 MG/WEEK LATER TITRATED TO 1.5 MG/WEEK
     Route: 065
  4. CABERGOLINE. [Suspect]
     Active Substance: CABERGOLINE
     Dosage: 1.5 MG/WEEK LATER REDUCED TO 0.75 MG/WEEK
     Route: 065

REACTIONS (1)
  - Impulse-control disorder [Recovering/Resolving]
